FAERS Safety Report 11619679 (Version 3)
Quarter: 2015Q4

REPORT INFORMATION
  Report Type: Report from Study
  Country: US (occurrence: US)
  Receive Date: 20151012
  Receipt Date: 20151021
  Transmission Date: 20160304
  Serious: Yes (Hospitalization, Other)
  Sender: FDA-Public Use
  Company Number: US-SA-2015SA103127

PATIENT
  Age: 44 Year
  Sex: Female

DRUGS (3)
  1. XANAX [Concomitant]
     Active Substance: ALPRAZOLAM
     Indication: ANXIETY
  2. AUBAGIO [Suspect]
     Active Substance: TERIFLUNOMIDE
     Indication: MULTIPLE SCLEROSIS
     Route: 048
     Dates: start: 20150730
  3. AUBAGIO [Suspect]
     Active Substance: TERIFLUNOMIDE
     Indication: MULTIPLE SCLEROSIS
     Route: 048

REACTIONS (18)
  - Nausea [Recovering/Resolving]
  - Weight decreased [Unknown]
  - Unevaluable event [Unknown]
  - Back pain [Unknown]
  - Insomnia [Not Recovered/Not Resolved]
  - Weight decreased [Not Recovered/Not Resolved]
  - Nightmare [Not Recovered/Not Resolved]
  - Balance disorder [Not Recovered/Not Resolved]
  - Muscular weakness [Not Recovered/Not Resolved]
  - Abdominal pain [Not Recovered/Not Resolved]
  - Urinary tract infection [Not Recovered/Not Resolved]
  - Headache [Unknown]
  - Vomiting [Not Recovered/Not Resolved]
  - Neck pain [Unknown]
  - Fall [Unknown]
  - Diarrhoea [Not Recovered/Not Resolved]
  - Anxiety [Not Recovered/Not Resolved]
  - Eating disorder [Unknown]

NARRATIVE: CASE EVENT DATE: 2015
